APPROVED DRUG PRODUCT: FOLIC ACID
Active Ingredient: FOLIC ACID
Strength: 1MG
Dosage Form/Route: TABLET;ORAL
Application: A091145 | Product #001 | TE Code: AA
Applicant: AIPING PHARMACEUTICAL INC
Approved: Jul 12, 2013 | RLD: No | RS: No | Type: RX